FAERS Safety Report 8292332 (Version 8)
Quarter: 2013Q1

REPORT INFORMATION
  Report Type: Spontaneous
  Country: US (occurrence: US)
  Receive Date: 20111215
  Receipt Date: 20130207
  Transmission Date: 20140127
  Serious: Yes (Life-Threatening, Hospitalization, Congenital Anomaly, Other)
  Sender: FDA-Public Use
  Company Number: US-JNJFOC-20111205496

PATIENT
  Sex: Male

DRUGS (12)
  1. TOPAMAX [Suspect]
     Indication: FOETAL EXPOSURE DURING PREGNANCY
     Route: 064
  2. TOPAMAX [Suspect]
     Indication: FOETAL EXPOSURE DURING PREGNANCY
     Route: 064
  3. ASPIRIN [Suspect]
     Indication: FOETAL EXPOSURE DURING PREGNANCY
     Route: 064
  4. OMEPRAZOLE [Suspect]
     Indication: FOETAL EXPOSURE DURING PREGNANCY
     Route: 064
  5. PENICILLIN G [Suspect]
     Indication: FOETAL EXPOSURE DURING PREGNANCY
     Route: 064
  6. PENICILLIN G [Suspect]
     Indication: FOETAL EXPOSURE DURING PREGNANCY
     Route: 064
  7. AMBIEN [Suspect]
     Indication: FOETAL EXPOSURE DURING PREGNANCY
     Route: 064
  8. DINOPROSTONE [Suspect]
     Indication: FOETAL EXPOSURE DURING PREGNANCY
     Route: 064
  9. PHENERGAN [Suspect]
     Indication: FOETAL EXPOSURE DURING PREGNANCY
     Route: 064
  10. NUBAIN [Suspect]
     Indication: FOETAL EXPOSURE DURING PREGNANCY
     Route: 042
  11. LACTATED RINGER^S [Suspect]
     Indication: FOETAL EXPOSURE DURING PREGNANCY
     Route: 064
  12. PRENATAL VITAMINS [Concomitant]
     Indication: FOETAL EXPOSURE DURING PREGNANCY
     Route: 064

REACTIONS (22)
  - Joint hyperextension [Unknown]
  - Developmental delay [Unknown]
  - Anal atresia [Unknown]
  - Low birth weight baby [Unknown]
  - Trisomy 14 [Unknown]
  - Craniosynostosis [Recovering/Resolving]
  - Hypospadias [Unknown]
  - Cleft lip [Recovering/Resolving]
  - Cleft palate [Unknown]
  - Sleep apnoea syndrome [Unknown]
  - Feeding disorder [Unknown]
  - Gastrooesophageal reflux disease [Unknown]
  - Dysphagia [Unknown]
  - Conductive deafness [Unknown]
  - Otitis media chronic [Not Recovered/Not Resolved]
  - Eustachian tube dysfunction [Unknown]
  - Multiple congenital abnormalities [Unknown]
  - Respiratory distress [Unknown]
  - Micrognathia [Unknown]
  - Disorder of orbit [Unknown]
  - Congenital central nervous system anomaly [Unknown]
  - Foetal growth restriction [Unknown]
